FAERS Safety Report 22662268 (Version 3)
Quarter: 2024Q3

REPORT INFORMATION
  Report Type: Spontaneous
  Country: DE (occurrence: DE)
  Receive Date: 20230701
  Receipt Date: 20240717
  Transmission Date: 20241016
  Serious: Yes (Death, Hospitalization, Other)
  Sender: AUROBINDO
  Company Number: DE-002147023-NVSC2021DE124541

PATIENT
  Sex: Female
  Weight: 63 kg

DRUGS (6)
  1. LETROZOLE [Suspect]
     Active Substance: LETROZOLE
     Indication: Breast cancer metastatic
     Dosage: 2.5 MILLIGRAM, ONCE A DAY (DAILY DOSE)
     Route: 048
     Dates: start: 20200220, end: 20200705
  2. LETROZOLE [Suspect]
     Active Substance: LETROZOLE
     Dosage: 2.5 MILLIGRAM, ONCE A DAY (DAILY DOSE)
     Route: 048
     Dates: start: 20200305, end: 20200305
  3. LETROZOLE [Suspect]
     Active Substance: LETROZOLE
     Dosage: 2.5 MILLIGRAM, ONCE A DAY (DAILY DOSE)
     Route: 048
     Dates: start: 20200512, end: 20201202
  4. KISQALI [Suspect]
     Active Substance: RIBOCICLIB
     Indication: Breast cancer metastatic
     Dosage: 600 MILLIGRAM, ONCE A DAY (DAILY DOSE) (SCHEMA 21 DAYS INTAKE, 7 DAYS PAUSE)
     Route: 048
     Dates: start: 20200305, end: 20200319
  5. KISQALI [Suspect]
     Active Substance: RIBOCICLIB
     Dosage: 400 MILLIGRAM, ONCE A DAY (DAILY DOSE) (SCHEMA 21 DAYS INTAKE, 7 DAYS PAUSE)
     Route: 048
     Dates: start: 20200512, end: 20200705
  6. KISQALI [Suspect]
     Active Substance: RIBOCICLIB
     Dosage: 400 MILLIGRAM, ONCE A DAY (DAILY DOSE) (SCHEMA 21 DAYS INTAKE, 7 DAYS PAUSE)
     Route: 048
     Dates: start: 20200515, end: 20200714

REACTIONS (9)
  - Breast cancer metastatic [Fatal]
  - General physical health deterioration [Fatal]
  - Death [Fatal]
  - Urinary retention [Not Recovered/Not Resolved]
  - Abdominal pain [Unknown]
  - Urinary tract infection [Recovering/Resolving]
  - Pyrexia [Unknown]
  - Chills [Unknown]
  - Renal disorder [Unknown]

NARRATIVE: CASE EVENT DATE: 20200913
